FAERS Safety Report 11787348 (Version 2)
Quarter: 2015Q4

REPORT INFORMATION
  Report Type: Spontaneous
  Country: US (occurrence: US)
  Receive Date: 20151130
  Receipt Date: 20151214
  Transmission Date: 20160305
  Serious: Yes (Other)
  Sender: FDA-Public Use
  Company Number: US-PFIZER INC-2015406135

PATIENT
  Age: 36 Year
  Sex: Male

DRUGS (3)
  1. VIAGRA [Suspect]
     Active Substance: SILDENAFIL CITRATE
     Indication: BACK DISORDER
     Dosage: 15 MG, 1X/DAY
     Route: 048
     Dates: start: 201510
  2. VIAGRA [Suspect]
     Active Substance: SILDENAFIL CITRATE
     Indication: PENIS DISORDER
     Dosage: 15 MG, 3X/DAY
     Route: 048
  3. OXYCONTIN [Concomitant]
     Active Substance: OXYCODONE HYDROCHLORIDE
     Indication: BACK DISORDER
     Dosage: 20 MG, UNK (TAKES A FEW A DAY)

REACTIONS (10)
  - Condition aggravated [Not Recovered/Not Resolved]
  - Erection increased [Unknown]
  - Wrong technique in product usage process [Unknown]
  - Ejaculation disorder [Not Recovered/Not Resolved]
  - Product use issue [Unknown]
  - Cyanopsia [Not Recovered/Not Resolved]
  - Intentional product misuse [Not Recovered/Not Resolved]
  - Chloropsia [Not Recovered/Not Resolved]
  - Penis disorder [Not Recovered/Not Resolved]
  - Penis disorder [Not Recovered/Not Resolved]

NARRATIVE: CASE EVENT DATE: 2015
